FAERS Safety Report 7358255-X (Version None)
Quarter: 2011Q1

REPORT INFORMATION
  Report Type: 
  Country: None (occurrence: None)
  Receive Date: 20110317
  Receipt Date: 20110310
  Transmission Date: 20110831
  Serious: Yes (Hospitalization, Other)
  Sender: FDA-Public Use
  Company Number: US-ROCHE-764821

PATIENT
  Sex: Female

DRUGS (4)
  1. HERCEPTIN [Suspect]
     Route: 065
     Dates: start: 20100607
  2. CARBOPLATIN [Concomitant]
     Dates: start: 20100607
  3. HERCEPTIN [Suspect]
     Route: 065
     Dates: start: 20110101
  4. TAXOTERE [Concomitant]
     Dates: start: 20100607

REACTIONS (4)
  - CARDIOMYOPATHY [None]
  - SYNCOPE [None]
  - FATIGUE [None]
  - CHEST DISCOMFORT [None]
